FAERS Safety Report 16178628 (Version 1)
Quarter: 2019Q2

REPORT INFORMATION
  Report Type: Spontaneous
  Country: PT (occurrence: PT)
  Receive Date: 20190410
  Receipt Date: 20190410
  Transmission Date: 20190711
  Serious: Yes (Death, Hospitalization, Other)
  Sender: FDA-Public Use
  Company Number: PHHY2019PT080315

PATIENT

DRUGS (6)
  1. FUROSEMIDE. [Suspect]
     Active Substance: FUROSEMIDE
     Dosage: 80 MG, QD
     Route: 065
  2. SPIRONOLACTONE. [Suspect]
     Active Substance: SPIRONOLACTONE
     Indication: ACID BASE BALANCE
     Dosage: UNK
     Route: 065
  3. BETAMETHASONE. [Concomitant]
     Active Substance: BETAMETHASONE
     Indication: NEURALGIA
     Dosage: UNK
     Route: 030
  4. ACETAZOLAMIDE. [Concomitant]
     Active Substance: ACETAZOLAMIDE
     Indication: ACID BASE BALANCE
     Dosage: UNK
     Route: 065
  5. GLUCOSAMINE HYDROCHLORIDE [Suspect]
     Active Substance: GLUCOSAMINE HYDROCHLORIDE
     Indication: NEURALGIA
     Dosage: UNK
     Route: 065
  6. FUROSEMIDE. [Suspect]
     Active Substance: FUROSEMIDE
     Indication: FACE OEDEMA
     Dosage: 40 MG, QD
     Route: 065

REACTIONS (21)
  - Off label use [Fatal]
  - Dry mouth [Fatal]
  - Tumour ulceration [Fatal]
  - Autonomic nervous system imbalance [Fatal]
  - Rash macular [Fatal]
  - Blood pressure increased [Fatal]
  - Blood corticotrophin increased [Fatal]
  - Respiratory tract infection [Fatal]
  - Asthenia [Fatal]
  - Oedema peripheral [Fatal]
  - Crying [Fatal]
  - Blood glucose fluctuation [Fatal]
  - Erythema [Fatal]
  - Somatostatin receptor scan abnormal [Fatal]
  - Gastrointestinal disorder [Fatal]
  - Hypercalciuria [Fatal]
  - Muscular weakness [Fatal]
  - Face oedema [Fatal]
  - Cortisol increased [Fatal]
  - Hypokalaemia [Fatal]
  - Metabolic alkalosis [Fatal]
